FAERS Safety Report 10019169 (Version 1)
Quarter: 2014Q1

REPORT INFORMATION
  Report Type: Spontaneous
  Country: US (occurrence: None)
  Receive Date: 20140314
  Receipt Date: 20140314
  Transmission Date: 20141002
  Serious: Yes (Other)
  Sender: FDA-Public Use
  Company Number: None

PATIENT
  Age: 53 Year
  Sex: Female
  Weight: 50.8 kg

DRUGS (6)
  1. DOCETAXEL [Suspect]
     Indication: BREAST CANCER
     Dosage: 6 CYCLES PLANNED
  2. CARBOPLATIN [Suspect]
     Indication: BREAST CANCER
  3. TRASTUZUMAB [Concomitant]
  4. DEXAMETHASONE [Concomitant]
  5. PALONOSETRON [Concomitant]
  6. LORAZEPAM [Concomitant]

REACTIONS (3)
  - Dry skin [None]
  - Phlebitis [None]
  - Skin hyperpigmentation [None]
